FAERS Safety Report 6412293-X (Version None)
Quarter: 2009Q4

REPORT INFORMATION
  Report Type: 
  Country: None (occurrence: None)
  Receive Date: 20091023
  Receipt Date: 20091016
  Transmission Date: 20100525
  Serious: Yes (Death)
  Sender: FDA-Public Use
  Company Number: FR-AMGEN-QUU369465

PATIENT
  Sex: Female

DRUGS (20)
  1. ARANESP [Suspect]
     Indication: RENAL FAILURE CHRONIC
     Dates: start: 20080727
  2. ARANESP [Suspect]
     Dates: start: 20080929, end: 20081217
  3. IMUREL [Concomitant]
     Route: 064
     Dates: start: 20080613, end: 20080916
  4. NEORAL [Concomitant]
     Route: 064
     Dates: start: 20081022, end: 20081217
  5. RENAGEL [Concomitant]
     Route: 064
     Dates: start: 20080828, end: 20081215
  6. KAYEXALATE [Concomitant]
     Route: 064
     Dates: start: 20080613, end: 20081115
  7. MUCOMYST [Concomitant]
     Route: 064
     Dates: start: 20080711, end: 20081011
  8. TIXOCORTOL PIVALATE [Concomitant]
     Route: 064
     Dates: start: 20081031, end: 20081107
  9. RHINOFLUIMUCIL [Concomitant]
     Route: 064
     Dates: start: 20080711, end: 20081011
  10. ATARAX [Concomitant]
     Route: 064
     Dates: start: 20080818, end: 20081217
  11. ORELOX [Concomitant]
     Route: 064
     Dates: start: 20080711, end: 20081117
  12. LASILIX [Concomitant]
     Route: 064
     Dates: start: 20080613, end: 20081215
  13. SPECIAFOLDINE [Concomitant]
     Route: 064
     Dates: start: 20080810, end: 20081217
  14. UN-ALFA [Concomitant]
     Route: 064
     Dates: start: 20080407, end: 20081017
  15. NEXIUM [Concomitant]
     Route: 064
     Dates: start: 20080613, end: 20081217
  16. VENOFER [Concomitant]
     Route: 042
     Dates: start: 20080613, end: 20081217
  17. AMLODIPINE BESYLATE [Concomitant]
     Route: 064
     Dates: start: 20080620, end: 20081215
  18. ZINC [Concomitant]
     Route: 064
     Dates: start: 20080829, end: 20080916
  19. ISOTRETINOIN [Concomitant]
     Route: 064
     Dates: start: 20080829, end: 20080916
  20. ERYTHROMYCIN [Concomitant]
     Route: 064
     Dates: start: 20080829, end: 20080916

REACTIONS (1)
  - STILLBIRTH [None]
